FAERS Safety Report 5934020-2 (Version None)
Quarter: 2008Q4

REPORT INFORMATION
  Report Type: 
  Country: None (occurrence: None)
  Receive Date: 20081029
  Receipt Date: 20081027
  Transmission Date: 20090506
  Serious: Yes (Other)
  Sender: FDA-Public Use
  Company Number: JP-ASTRAZENECA-2008AC02791

PATIENT
  Age: 18 Year
  Sex: Male
  Weight: 60 kg

DRUGS (4)
  1. ROPIVACAINE [Suspect]
     Indication: LOCAL ANAESTHESIA
     Dosage: 20 MLS OF 7.5 MG ML-1 INJECTED OVER ONE MINUTE IN 3 - 4 INCREMENTS
     Route: 053
  2. ROPIVACAINE [Suspect]
     Dosage: 15 MINS APART - 20 MLS OF 7.5 MG ML-1 INJECTED OVER 1 MIN IN 3 - 4 INCREMENTS (TOTAL DOSE 5 MG KG-1)
     Route: 053
  3. HYDROXYZINE [Concomitant]
     Indication: PREMEDICATION
  4. ATROPINE [Concomitant]
     Indication: PREMEDICATION

REACTIONS (2)
  - GRAND MAL CONVULSION [None]
  - LOSS OF CONSCIOUSNESS [None]
